FAERS Safety Report 13831562 (Version 1)
Quarter: 2017Q3

REPORT INFORMATION
  Report Type: Spontaneous
  Country: US (occurrence: US)
  Receive Date: 20170803
  Receipt Date: 20170803
  Transmission Date: 20171127
  Serious: No
  Sender: FDA-Public Use
  Company Number: GXBR2017US001802

PATIENT
  Sex: Male
  Weight: 79.82 kg

DRUGS (3)
  1. CLOBETASOL PROPIONATE. [Suspect]
     Active Substance: CLOBETASOL PROPIONATE
     Indication: SKIN EXFOLIATION
     Dosage: UNK UNK, QID
     Route: 065
     Dates: start: 201408
  2. SYMBICORT [Concomitant]
     Active Substance: BUDESONIDE\FORMOTEROL FUMARATE DIHYDRATE
     Indication: ASTHMA
     Dosage: UNK UNK, BID
     Route: 055
  3. CLOBETASOL PROPIONATE. [Suspect]
     Active Substance: CLOBETASOL PROPIONATE
     Indication: SKIN HAEMORRHAGE
     Dosage: UNK, QHS
     Route: 065
     Dates: end: 201604

REACTIONS (2)
  - Pain [Not Recovered/Not Resolved]
  - Bleeding varicose vein [Not Recovered/Not Resolved]
